FAERS Safety Report 13841314 (Version 3)
Quarter: 2017Q4

REPORT INFORMATION
  Report Type: Spontaneous
  Country: CA (occurrence: CA)
  Receive Date: 20170807
  Receipt Date: 20171121
  Transmission Date: 20180320
  Serious: Yes (Other)
  Sender: FDA-Public Use
  Company Number: CA-BIOMARINAP-CA-2017-114978

PATIENT
  Age: 12 Year
  Sex: Female

DRUGS (1)
  1. ALDURAZYME [Suspect]
     Active Substance: LARONIDASE
     Indication: MUCOPOLYSACCHARIDOSIS I
     Dosage: 0.58 MG/KG, QW
     Route: 041

REACTIONS (6)
  - Developmental hip dysplasia [Unknown]
  - Drug ineffective [Unknown]
  - Disease progression [Unknown]
  - Urinary glycosaminoglycans increased [Unknown]
  - Aortic stenosis [Unknown]
  - Lung disorder [Unknown]
